FAERS Safety Report 9946612 (Version 1)
Quarter: 2014Q1

REPORT INFORMATION
  Report Type: Report from Study
  Country: US (occurrence: US)
  Receive Date: 20140303
  Receipt Date: 20140303
  Transmission Date: 20141002
  Serious: No
  Sender: FDA-Public Use
  Company Number: US-ABBVIE-13P-163-1063711-00

PATIENT
  Age: 54 Year
  Sex: Female

DRUGS (15)
  1. HUMIRA [Suspect]
     Indication: COLITIS ULCERATIVE
     Dates: start: 20121206
  2. VALSARTAN-HCTZ [Concomitant]
     Indication: HYPERTENSION
     Dosage: 320-25 MG DAILY
  3. PROPRANOLOL [Concomitant]
     Indication: HEADACHE
  4. VALACYCLOVIR [Concomitant]
     Indication: HERPES VIRUS INFECTION
     Dosage: 100 MG DAILY
  5. ASACOL [Concomitant]
     Indication: COLITIS ULCERATIVE
  6. GABAPENTIN [Concomitant]
     Indication: NERVE INJURY
  7. GABAPENTIN [Concomitant]
     Indication: DIABETES MELLITUS
  8. JANUMET [Concomitant]
     Indication: DIABETES MELLITUS
     Dosage: 100-1000 MG DAILY
  9. ATORVASTATIN [Concomitant]
     Indication: BLOOD CHOLESTEROL INCREASED
  10. PREDNISONE [Concomitant]
     Indication: SARCOIDOSIS
  11. CELEBREX [Concomitant]
     Indication: ARTHRITIS
     Dosage: 200 MG DAILY
  12. CITALOPRAM [Concomitant]
     Indication: DEPRESSION
     Dosage: 20 MG DAILY
  13. INHALER [Concomitant]
     Indication: SARCOIDOSIS
  14. CALCIUM SUPPLIMENT [Concomitant]
     Indication: PRODUCT USED FOR UNKNOWN INDICATION
  15. MULTIVITAMIN [Concomitant]
     Indication: PRODUCT USED FOR UNKNOWN INDICATION
     Dosage: DAILY

REACTIONS (3)
  - Injection site bruising [Recovered/Resolved]
  - Injection site pruritus [Recovered/Resolved]
  - Injection site erythema [Recovered/Resolved]
